FAERS Safety Report 16806357 (Version 1)
Quarter: 2019Q3

REPORT INFORMATION
  Report Type: Spontaneous
  Country: US (occurrence: US)
  Receive Date: 20190913
  Receipt Date: 20190913
  Transmission Date: 20191005
  Serious: No
  Sender: FDA-Public Use
  Company Number: US-PERRIGO-19US003112

PATIENT
  Age: 62 Year
  Sex: Female
  Weight: 58.96 kg

DRUGS (1)
  1. MINOXIDIL. [Suspect]
     Active Substance: MINOXIDIL
     Indication: ALOPECIA
     Dosage: 1 ML, BID
     Route: 061
     Dates: start: 201708

REACTIONS (3)
  - Growth of eyelashes [Not Recovered/Not Resolved]
  - Application site pain [Recovered/Resolved]
  - Mucosal hypertrophy [Not Recovered/Not Resolved]

NARRATIVE: CASE EVENT DATE: 201712
